FAERS Safety Report 8096381-0 (Version None)
Quarter: 2012Q1

REPORT INFORMATION
  Report Type: 
  Country: None (occurrence: None)
  Receive Date: 20120126
  Receipt Date: 20120125
  Transmission Date: 20120608
  Serious: Yes (Life-Threatening)
  Sender: FDA-Public Use
  Company Number: TPG2012A00073

PATIENT
  Age: 66 Year
  Sex: Female

DRUGS (2)
  1. METFORMIN HCL [Concomitant]
  2. ACTOS [Suspect]
     Indication: TYPE 2 DIABETES MELLITUS
     Route: 048
     Dates: start: 20030101

REACTIONS (1)
  - MALIGNANT URINARY TRACT NEOPLASM [None]
